FAERS Safety Report 6376139-0 (Version None)
Quarter: 2009Q3

REPORT INFORMATION
  Report Type: 
  Country: None (occurrence: None)
  Receive Date: 20090921
  Receipt Date: 20090908
  Transmission Date: 20100115
  Serious: Yes (Other)
  Sender: FDA-Public Use
  Company Number: 1-19800424

PATIENT
  Age: 31 Year
  Sex: Female

DRUGS (3)
  1. LORAZEPAM [Suspect]
     Indication: BIPOLAR DISORDER
     Dosage: 2.5 MG, ONCE, ORAL
     Route: 048
  2. OLANZAPINE [Suspect]
     Indication: BIPOLAR DISORDER
     Dosage: 15MG ONCE, THEN 5MG X 2, ORAL
     Route: 048
  3. ZOPICLONE [Concomitant]

REACTIONS (5)
  - BLOOD GLUCOSE INCREASED [None]
  - BLOOD PRESSURE DECREASED [None]
  - DRUG INTERACTION [None]
  - MANIA [None]
  - SYNCOPE [None]
